FAERS Safety Report 6215826-1 (Version None)
Quarter: 2009Q2

REPORT INFORMATION
  Report Type: 
  Country: None (occurrence: None)
  Receive Date: 20090605
  Receipt Date: 20090529
  Transmission Date: 20091009
  Serious: Yes (Hospitalization)
  Sender: FDA-Public Use
  Company Number: US-AMGEN-KDL349500

PATIENT
  Sex: Female
  Weight: 84.4 kg

DRUGS (12)
  1. PROCRIT [Suspect]
     Indication: RENAL FAILURE CHRONIC
  2. LASIX [Concomitant]
  3. MAGNESIUM OXIDE [Concomitant]
  4. ENALAPRIL [Concomitant]
  5. POTASSIUM CHLORIDE [Concomitant]
  6. NORVASC [Concomitant]
  7. GLIPIZIDE [Concomitant]
  8. LIPITOR [Concomitant]
  9. WARFARIN [Concomitant]
  10. CALCITRIOL [Concomitant]
  11. POLYSACCHARIDE-IRON COMPLEX [Concomitant]
  12. NEXIUM [Concomitant]

REACTIONS (2)
  - COLON CANCER [None]
  - HAEMOGLOBIN DECREASED [None]
